FAERS Safety Report 7398345 (Version 3)
Quarter: 2013Q1

REPORT INFORMATION
  Report Type: Spontaneous
  Country: US (occurrence: US)
  Receive Date: 20100525
  Receipt Date: 20130129
  Transmission Date: 20140127
  Serious: Yes (Other)
  Sender: FDA-Public Use
  Company Number: US-AMGEN-KDL397333

PATIENT
  Age: 51 Year
  Sex: Male
  Weight: 133.33 kg

DRUGS (13)
  1. NPLATE [Suspect]
     Indication: IDIOPATHIC THROMBOCYTOPENIC PURPURA
     Dosage: 150 MUG, QWK
     Route: 058
     Dates: start: 20091016, end: 20091105
  2. NPLATE [Suspect]
     Dosage: 300 MUG, QWK
     Route: 058
     Dates: start: 20091106, end: 20091126
  3. NPLATE [Suspect]
     Dosage: 450 MUG, QWK
     Route: 058
     Dates: start: 20091127, end: 20100205
  4. NPLATE [Suspect]
     Dosage: 3 MUG/KG, UNK
     Dates: start: 200910
  5. CORTICOSTEROID NOS [Concomitant]
  6. PREDNISONE [Concomitant]
     Dosage: 10 MG, UNK
  7. PREDNISONE [Concomitant]
     Dosage: 40 MUG, UNK
     Dates: start: 20100205
  8. PREDNISONE [Concomitant]
     Dosage: 30 MUG, UNK
     Dates: start: 20100219
  9. TRIAMCINOLONE [Concomitant]
     Dosage: UNK
     Route: 061
     Dates: start: 20100205, end: 20100309
  10. HYDROXYZINE [Concomitant]
     Dosage: 25 MG, UNK
     Dates: start: 20100205, end: 20100412
  11. LISINOPRIL [Concomitant]
     Dosage: UNK
     Dates: start: 20090826
  12. AMLODIPINE [Concomitant]
     Dosage: UNK
     Dates: start: 20090113
  13. MULTIVITAMINS [Concomitant]

REACTIONS (8)
  - Alcoholism [Unknown]
  - Blood pressure increased [Unknown]
  - Hypersensitivity [Recovered/Resolved]
  - Pruritus [Recovering/Resolving]
  - Localised oedema [Unknown]
  - Oedema peripheral [Recovered/Resolved]
  - Excoriation [Unknown]
  - Rash [Recovered/Resolved]
